FAERS Safety Report 9774941 (Version 1)
Quarter: 2013Q4

REPORT INFORMATION
  Report Type: Spontaneous
  Country: US (occurrence: US)
  Receive Date: 20131220
  Receipt Date: 20131220
  Transmission Date: 20140711
  Serious: No
  Sender: FDA-Public Use
  Company Number: US-GLAXOSMITHKLINE-A1020970A

PATIENT
  Age: 84 Year
  Sex: Male

DRUGS (8)
  1. AVODART [Suspect]
     Indication: PROSTATOMEGALY
     Dosage: 1CAP PER DAY
     Route: 048
     Dates: start: 2010
  2. TAMSULOSIN [Concomitant]
  3. SPIRIVA [Concomitant]
  4. ADVAIR [Concomitant]
  5. FUROSEMIDE [Concomitant]
  6. POTASSIUM [Concomitant]
  7. ATORVASTATIN [Concomitant]
  8. NEXIUM [Concomitant]

REACTIONS (3)
  - Gynaecomastia [Not Recovered/Not Resolved]
  - Breast tenderness [Not Recovered/Not Resolved]
  - Drug ineffective [Not Recovered/Not Resolved]
